FAERS Safety Report 11244355 (Version 1)
Quarter: 2015Q3

REPORT INFORMATION
  Report Type: Spontaneous
  Country: CA (occurrence: CA)
  Receive Date: 20150707
  Receipt Date: 20150707
  Transmission Date: 20151125
  Serious: Yes (Hospitalization)
  Sender: FDA-Public Use
  Company Number: CA-HOSPIRA-2700878

PATIENT
  Age: 44 Year
  Sex: Female
  Weight: 67 kg

DRUGS (1)
  1. FENTANYL CITRATE. [Suspect]
     Active Substance: FENTANYL CITRATE
     Indication: ANALGESIC THERAPY
     Route: 042

REACTIONS (2)
  - Rash pustular [Unknown]
  - Rash macular [Unknown]
